FAERS Safety Report 7068187-2 (Version None)
Quarter: 2010Q4

REPORT INFORMATION
  Report Type: 
  Country: None (occurrence: None)
  Receive Date: 20101028
  Receipt Date: 20101015
  Transmission Date: 20110411
  Serious: Yes (Death)
  Sender: FDA-Public Use
  Company Number: GB-ROCHE-734447

PATIENT
  Age: 76 Year
  Sex: Female

DRUGS (12)
  1. IBANDRONIC ACID [Suspect]
     Indication: PRODUCT USED FOR UNKNOWN INDICATION
     Route: 065
  2. LUCENTIS [Suspect]
     Indication: PRODUCT USED FOR UNKNOWN INDICATION
     Route: 065
     Dates: start: 20090806, end: 20100214
  3. LUCENTIS [Suspect]
     Route: 065
     Dates: start: 20100214
  4. ADCAL [Concomitant]
  5. DIGOXIN [Concomitant]
  6. FLUOXETINE [Concomitant]
  7. FRUSEMIDE [Concomitant]
  8. LISINOPRIL [Concomitant]
  9. SIMVASTATIN [Concomitant]
  10. TIOTROPIUM [Concomitant]
  11. VENTOLIN [Concomitant]
  12. WARFARIN SODIUM [Concomitant]

REACTIONS (8)
  - CEREBRAL HAEMORRHAGE [None]
  - DIARRHOEA [None]
  - FALL [None]
  - HEAD INJURY [None]
  - HEMIPARESIS [None]
  - NECK PAIN [None]
  - NEOPLASM MALIGNANT [None]
  - VOMITING [None]
